FAERS Safety Report 10504007 (Version 1)
Quarter: 2014Q4

REPORT INFORMATION
  Report Type: Spontaneous
  Country: US (occurrence: US)
  Receive Date: 20141008
  Receipt Date: 20141008
  Transmission Date: 20150528
  Serious: No
  Sender: FDA-Public Use
  Company Number: US-BEH-2013036591

PATIENT
  Age: 39 Year
  Sex: Female

DRUGS (1)
  1. PRIVIGEN [Suspect]
     Active Substance: HUMAN IMMUNOGLOBULIN G
     Indication: IMMUNE THROMBOCYTOPENIC PURPURA
     Dosage: DID NOT COMPLETE 5 DAY CONSECUTIVE DOSING
     Route: 042
     Dates: start: 20130605, end: 20130607

REACTIONS (2)
  - Adverse reaction [Unknown]
  - Headache [Unknown]

NARRATIVE: CASE EVENT DATE: 20130606
